FAERS Safety Report 9942171 (Version 1)
Quarter: 2014Q1

REPORT INFORMATION
  Report Type: Report from Study
  Country: US (occurrence: US)
  Receive Date: 20140303
  Receipt Date: 20140303
  Transmission Date: 20141002
  Serious: No
  Sender: FDA-Public Use
  Company Number: US-ABBVIE-13P-163-1041524-00

PATIENT
  Age: 57 Year
  Sex: Male

DRUGS (8)
  1. HUMIRA [Suspect]
     Indication: PSORIASIS
     Route: 058
     Dates: start: 201207, end: 201210
  2. HUMIRA [Suspect]
     Route: 058
     Dates: start: 201210
  3. HUMIRA [Suspect]
     Route: 058
  4. MICARDIS [Concomitant]
     Indication: HYPERTENSION
  5. SYNTHROID [Concomitant]
     Indication: HYPOTHYROIDISM
  6. SIMVASTATIN [Concomitant]
     Indication: BLOOD CHOLESTEROL INCREASED
     Dosage: EVERY NIGHT
  7. BABY ASA [Concomitant]
     Indication: ANTICOAGULANT THERAPY
     Dosage: DAILY
  8. NIACIN [Concomitant]
     Indication: PROPHYLAXIS

REACTIONS (1)
  - Psoriasis [Not Recovered/Not Resolved]
